FAERS Safety Report 6664388-3 (Version None)
Quarter: 2010Q2

REPORT INFORMATION
  Report Type: 
  Country: None (occurrence: None)
  Receive Date: 20100401
  Receipt Date: 20100329
  Transmission Date: 20101027
  Serious: Yes (Hospitalization)
  Sender: FDA-Public Use
  Company Number: PHHO2010AU04971

PATIENT
  Sex: Male
  Weight: 89.4 kg

DRUGS (1)
  1. STI571/CGP57148B T35717+CAPS [Suspect]
     Indication: CHRONIC MYELOID LEUKAEMIA
     Dosage: 600 MG, UNK
     Route: 048
     Dates: start: 20021115, end: 20100305

REACTIONS (13)
  - ABDOMINAL ABSCESS [None]
  - ABDOMINAL PAIN [None]
  - ABSCESS DRAINAGE [None]
  - APPENDICEAL ABSCESS [None]
  - APPENDICECTOMY [None]
  - APPENDICITIS [None]
  - COLECTOMY [None]
  - DIARRHOEA [None]
  - FLUID OVERLOAD [None]
  - HYPERHIDROSIS [None]
  - HYPOTENSION [None]
  - PERITONITIS [None]
  - PYREXIA [None]
